FAERS Safety Report 18840295 (Version 1)
Quarter: 2021Q1

REPORT INFORMATION
  Report Type: Spontaneous
  Country: US (occurrence: US)
  Receive Date: 20210204
  Receipt Date: 20210204
  Transmission Date: 20210419
  Serious: No
  Sender: FDA-Public Use
  Company Number: US-GLAXOSMITHKLINE-US2020AMR254474

PATIENT

DRUGS (1)
  1. BENLYSTA [Suspect]
     Active Substance: BELIMUMAB
     Indication: LUPUS-LIKE SYNDROME
     Dosage: 200 MG/ML

REACTIONS (5)
  - Pain in extremity [Unknown]
  - Drug ineffective [Unknown]
  - Headache [Unknown]
  - Product complaint [Unknown]
  - Fatigue [Unknown]
